FAERS Safety Report 5775690-1 (Version None)
Quarter: 2008Q2

REPORT INFORMATION
  Report Type: 
  Country: None (occurrence: None)
  Receive Date: 20080617
  Receipt Date: 20080605
  Transmission Date: 20081010
  Serious: Yes (Other)
  Sender: FDA-Public Use
  Company Number: IE-PFIZER INC-2008044839

PATIENT
  Sex: Male

DRUGS (1)
  1. LYRICA [Suspect]
     Route: 048

REACTIONS (5)
  - ERYTHEMA [None]
  - EYE SWELLING [None]
  - INTENTIONAL DRUG MISUSE [None]
  - STOMACH DISCOMFORT [None]
  - SWELLING FACE [None]
